FAERS Safety Report 10880066 (Version 8)
Quarter: 2020Q1

REPORT INFORMATION
  Report Type: Spontaneous
  Country: US (occurrence: US)
  Receive Date: 20150302
  Receipt Date: 20200225
  Transmission Date: 20200409
  Serious: Yes (Other)
  Sender: FDA-Public Use
  Company Number: US-PFIZER INC-2015070982

PATIENT
  Age: 65 Year
  Sex: Female
  Weight: 82 kg

DRUGS (6)
  1. REVATIO [Suspect]
     Active Substance: SILDENAFIL CITRATE
     Indication: PULMONARY THROMBOSIS
  2. REVATIO [Suspect]
     Active Substance: SILDENAFIL CITRATE
     Indication: CARDIAC OPERATION
     Dosage: 40 MG, 3X/DAY, (20 MG TABLETS TAKEN BY MOUTH: 2 TABLETS 3 TIMES DAILY)
     Route: 048
  3. LEVOTHYROXINE. [Concomitant]
     Active Substance: LEVOTHYROXINE
     Indication: THYROID DISORDER
     Dosage: 125 UG, 1X/DAY
  4. REVATIO [Suspect]
     Active Substance: SILDENAFIL CITRATE
     Indication: PULMONARY HYPERTENSION
  5. REVATIO [Suspect]
     Active Substance: SILDENAFIL CITRATE
     Indication: HYPERTENSION
  6. REVATIO [Suspect]
     Active Substance: SILDENAFIL CITRATE
     Indication: LUNG OPERATION
     Dosage: 20 MG, 3X/DAY, (1 TABLET 3 TIMES DAILY)
     Route: 048
     Dates: start: 2012

REACTIONS (6)
  - Pneumonia [Unknown]
  - Off label use [Unknown]
  - Urinary tract infection [Recovered/Resolved]
  - Nausea [Recovered/Resolved]
  - Cystitis [Unknown]
  - Intentional underdose [Unknown]

NARRATIVE: CASE EVENT DATE: 2015
